FAERS Safety Report 10245710 (Version 2)
Quarter: 2014Q2

REPORT INFORMATION
  Report Type: Report from Study
  Country: DE (occurrence: DE)
  Receive Date: 20140619
  Receipt Date: 20140619
  Transmission Date: 20141212
  Serious: Yes (Hospitalization)
  Sender: FDA-Public Use
  Company Number: DE-AMGEN INC.-DEUCT2014040628

PATIENT
  Age: 55 Year
  Sex: Male
  Weight: 118 kg

DRUGS (7)
  1. ETANERCEPT [Suspect]
     Indication: ANKYLOSING SPONDYLITIS
     Dosage: 25 MG, 2 TIMES/WK
     Route: 065
     Dates: start: 20130129, end: 201304
  2. ETANERCEPT [Suspect]
     Dosage: 25 MG, QWK
     Route: 065
     Dates: start: 20130408, end: 201305
  3. ETANERCEPT [Suspect]
     Dosage: 25 MG, 2 TIMES/WK
     Route: 065
     Dates: start: 201305, end: 20130826
  4. IBUPROFEN [Concomitant]
     Indication: ANKYLOSING SPONDYLITIS
     Dosage: 800 MG, 1X/DAY
     Dates: start: 2005
  5. IBUPROFEN [Concomitant]
     Dosage: 0.5 DF TWICE
     Dates: start: 2006
  6. RAMIPRIL [Concomitant]
     Indication: HYPERTENSION
     Dosage: 5 MG, 1X/DAY
     Dates: start: 201006
  7. METFORMIN [Concomitant]
     Dosage: UNK

REACTIONS (2)
  - Iritis [Recovered/Resolved]
  - Drug ineffective [Unknown]
